FAERS Safety Report 17604205 (Version 1)
Quarter: 2020Q1

REPORT INFORMATION
  Report Type: Spontaneous
  Country: US (occurrence: US)
  Receive Date: 20200329
  Receipt Date: 20200329
  Transmission Date: 20200409
  Serious: No
  Sender: FDA-Public Use
  Company Number: None

PATIENT
  Sex: Female

DRUGS (1)
  1. DALFAMPRIDINE ER [Suspect]
     Active Substance: DALFAMPRIDINE
     Indication: MULTIPLE SCLEROSIS
     Route: 048
     Dates: start: 201910

REACTIONS (7)
  - Therapy non-responder [None]
  - Insurance issue [None]
  - Back pain [None]
  - Muscle spasms [None]
  - Inability to afford medication [None]
  - Fall [None]
  - Product use issue [None]
